FAERS Safety Report 8191150-5 (Version None)
Quarter: 2012Q1

REPORT INFORMATION
  Report Type: 
  Country: None (occurrence: None)
  Receive Date: 20120221
  Receipt Date: 20111214
  Transmission Date: 20120608
  Serious: No
  Sender: FDA-Public Use
  Company Number: 047847

PATIENT
  Age: 6 Year

DRUGS (1)
  1. LACOSAMIDE [Suspect]

REACTIONS (2)
  - PALPITATIONS [None]
  - MEDICATION ERROR [None]
